FAERS Safety Report 7600280-5 (Version None)
Quarter: 2011Q3

REPORT INFORMATION
  Report Type: 
  Country: None (occurrence: None)
  Receive Date: 20110706
  Receipt Date: 20110706
  Transmission Date: 20111222
  Serious: Yes (Other)
  Sender: FDA-Public Use
  Company Number: None

PATIENT
  Age: 85 Year
  Sex: Male
  Weight: 81.6475 kg

DRUGS (1)
  1. PRADAXA [Suspect]
     Indication: ATRIAL FIBRILLATION
     Dosage: 150 MG 2 TIMES A DAY PO
     Route: 048
     Dates: start: 20110131, end: 20110520

REACTIONS (8)
  - ASTHENIA [None]
  - WEIGHT DECREASED [None]
  - OEDEMA PERIPHERAL [None]
  - PAIN IN EXTREMITY [None]
  - JOINT SWELLING [None]
  - JOINT STIFFNESS [None]
  - ARTHRALGIA [None]
  - MUSCLE ATROPHY [None]
